FAERS Safety Report 5398901-3 (Version None)
Quarter: 2007Q3

REPORT INFORMATION
  Report Type: 
  Country: None (occurrence: None)
  Receive Date: 20070727
  Receipt Date: 20070720
  Transmission Date: 20080115
  Serious: Yes (Other)
  Sender: FDA-Public Use
  Company Number: PHRM2007FR01903

PATIENT
  Sex: Male

DRUGS (4)
  1. TEGRETOL [Suspect]
     Dosage: 100 MG, BID
     Route: 048
  2. KARDEGIC [Concomitant]
     Route: 048
  3. CORVASAL [Concomitant]
     Route: 048
  4. GRAPEFRUIT JUICE [Suspect]
     Route: 048

REACTIONS (2)
  - FOOD INTERACTION [None]
  - HAEMATURIA [None]
